FAERS Safety Report 13152148 (Version 2)
Quarter: 2017Q1

REPORT INFORMATION
  Report Type: Other
  Country: NL (occurrence: NL)
  Receive Date: 20170125
  Receipt Date: 20170127
  Transmission Date: 20170428
  Serious: Yes (Death)
  Sender: FDA-Public Use
  Company Number: NL-CELLTRION INC.-2017NL000547

PATIENT

DRUGS (3)
  1. REMSIMA [Suspect]
     Active Substance: INFLIXIMAB
     Dosage: 3.2 MG/KG, (3 INFUSIONS ON A 6 WEEK INTERVAL)
     Route: 042
     Dates: start: 20161216, end: 20161216
  2. REMSIMA [Suspect]
     Active Substance: INFLIXIMAB
     Indication: CROHN^S DISEASE
     Dosage: 3.2 MG/KG, (3 INFUSIONS ON A 6 WEEK INTERVAL)
     Route: 042
     Dates: start: 20160923, end: 20160923
  3. REMSIMA [Suspect]
     Active Substance: INFLIXIMAB
     Dosage: 3.2 MG/KG,(3 INFUSIONS ON A 6 WEEK INTERVAL)
     Route: 042
     Dates: start: 20161104, end: 20161104

REACTIONS (3)
  - Inappropriate schedule of drug administration [Unknown]
  - Subarachnoid haemorrhage [Fatal]
  - Incorrect dose administered [Unknown]

NARRATIVE: CASE EVENT DATE: 20170103
